FAERS Safety Report 4296537-9 (Version None)
Quarter: 2004Q1

REPORT INFORMATION
  Report Type: 
  Country: None (occurrence: None)
  Receive Date: 20040126
  Receipt Date: 20030825
  Transmission Date: 20041129
  Serious: No
  Sender: FDA-Public Use
  Company Number: USA030845304

PATIENT
  Age: 11 Year
  Sex: Male
  Weight: 36 kg

DRUGS (7)
  1. STRATTERA [Suspect]
     Indication: ATTENTION DEFICIT/HYPERACTIVITY DISORDER
     Dosage: 25 MG/IN THE MORNING
     Dates: start: 20030818
  2. FORADIL [Concomitant]
  3. IMIPRAMINE [Concomitant]
  4. ALBUTEROL [Concomitant]
  5. SINGULAIR [Concomitant]
  6. PULMICORT [Concomitant]
  7. NASONEX [Concomitant]

REACTIONS (3)
  - EYE REDNESS [None]
  - EYELID OEDEMA [None]
  - SOMNOLENCE [None]
